FAERS Safety Report 8828989 (Version 1)
Quarter: 2012Q4

REPORT INFORMATION
  Report Type: 
  Country: US (occurrence: US)
  Receive Date: 20121008
  Receipt Date: 20121008
  Transmission Date: 20130627
  Serious: Yes (Other)
  Sender: FDA-Public Use
  Company Number: US-ROCHE-1136194

PATIENT
  Sex: Female

DRUGS (3)
  1. RITUXAN [Suspect]
     Indication: ANAEMIA HAEMOLYTIC AUTOIMMUNE
     Route: 065
  2. RITUXAN [Suspect]
     Indication: OFF LABEL USE
  3. PREDNISONE [Concomitant]

REACTIONS (13)
  - Haemolysis [Unknown]
  - Angina pectoris [Unknown]
  - Pneumonia [Unknown]
  - Jaundice [Unknown]
  - Decubitus ulcer [Unknown]
  - Asthenia [Unknown]
  - Fatigue [Unknown]
  - Malaise [Unknown]
  - Dyspnoea [Unknown]
  - Eye disorder [Unknown]
  - Skin disorder [Unknown]
  - Urine abnormality [Unknown]
  - Pruritus [Unknown]
